FAERS Safety Report 6920056-1 (Version None)
Quarter: 2010Q3

REPORT INFORMATION
  Report Type: 
  Country: None (occurrence: None)
  Receive Date: 20100811
  Receipt Date: 20100730
  Transmission Date: 20110219
  Serious: Yes (Other)
  Sender: FDA-Public Use
  Company Number: US-PFIZER INC-2010096129

PATIENT
  Sex: Female
  Weight: 71.655 kg

DRUGS (3)
  1. LYRICA [Suspect]
     Indication: INTERVERTEBRAL DISC PROTRUSION
     Dosage: UNK; 2X/DAY
     Route: 048
     Dates: start: 20100701, end: 20100730
  2. LYRICA [Suspect]
     Indication: BACK PAIN
  3. SULFAMETHOXAZOLE AND TRIMETHOPRIM [Concomitant]
     Indication: CYSTITIS
     Dosage: UNK

REACTIONS (3)
  - CONVULSION [None]
  - LOSS OF CONSCIOUSNESS [None]
  - TREMOR [None]
